FAERS Safety Report 5755165-6 (Version None)
Quarter: 2008Q2

REPORT INFORMATION
  Report Type: 
  Country: None (occurrence: None)
  Receive Date: 20080529
  Receipt Date: 20080529
  Transmission Date: 20081010
  Serious: Yes (Other)
  Sender: FDA-Public Use
  Company Number: None

PATIENT
  Age: 50 Year
  Sex: Male
  Weight: 52 kg

DRUGS (1)
  1. LAMICTAL [Suspect]
     Dosage: 50-100MG QAM PO 100MG HS PO
     Route: 048
     Dates: start: 20070801, end: 20071109

REACTIONS (1)
  - DRUG ERUPTION [None]
